FAERS Safety Report 23065257 (Version 2)
Quarter: 2023Q4

REPORT INFORMATION
  Report Type: Spontaneous
  Country: CA (occurrence: CA)
  Receive Date: 20231013
  Receipt Date: 20231020
  Transmission Date: 20240110
  Serious: No
  Sender: FDA-Public Use
  Company Number: CA-BAUSCH-BL-2023-015134

PATIENT
  Age: 42 Year
  Sex: Female

DRUGS (7)
  1. HYDROCORTISONE [Suspect]
     Active Substance: HYDROCORTISONE
     Indication: Dermatitis atopic
     Route: 061
  2. HYDROCORTISONE VALERATE [Suspect]
     Active Substance: HYDROCORTISONE VALERATE
     Indication: Dermatitis atopic
     Route: 061
     Dates: end: 202007
  3. BETAMETHASONE VALERATE [Suspect]
     Active Substance: BETAMETHASONE VALERATE
     Indication: Dermatitis atopic
     Route: 061
     Dates: end: 202007
  4. DESONIDE [Suspect]
     Active Substance: DESONIDE
     Indication: Dermatitis atopic
     Dosage: DAILY ON HANDS, WRISTS, FEET, AND ANKLES (DURING 5-YEAR OVERLAP, TWELVE 30 G TUBES IN APP. 2MONTHS)
     Route: 061
     Dates: end: 202007
  5. BETAMETHASONE DIPROPIONATE [Suspect]
     Active Substance: BETAMETHASONE DIPROPIONATE
     Indication: Dermatitis atopic
     Dosage: DAILY ON HANDS, WRISTS, FEET, AND ANKLES (DURING 5-YEAR OVERLAP, SEVEN 30 G TUBES IN APP. 2MONTHS)
     Route: 061
     Dates: end: 202007
  6. DEXAMETHASONE [Concomitant]
     Active Substance: DEXAMETHASONE
     Indication: Product used for unknown indication
     Route: 065
  7. FLUTICASONE FUROATE [Concomitant]
     Active Substance: FLUTICASONE FUROATE
     Indication: Product used for unknown indication
     Dosage: INHALER
     Route: 055

REACTIONS (3)
  - Topical steroid withdrawal reaction [Recovered/Resolved]
  - Product use issue [Unknown]
  - Incorrect product administration duration [Unknown]

NARRATIVE: CASE EVENT DATE: 20200701
